FAERS Safety Report 4871436-X (Version None)
Quarter: 2005Q4

REPORT INFORMATION
  Report Type: 
  Country: None (occurrence: None)
  Receive Date: 20051229
  Receipt Date: 20051108
  Transmission Date: 20060501
  Serious: Yes (Death)
  Sender: FDA-Public Use
  Company Number: MK200512-0438-1

PATIENT
  Age: 10 Month
  Sex: Female

DRUGS (1)
  1. METHADOSE [Suspect]
     Dosage: PO
     Route: 048

REACTIONS (3)
  - CARDIO-RESPIRATORY ARREST [None]
  - MUSCLE RIGIDITY [None]
  - VICTIM OF ABUSE [None]
